FAERS Safety Report 25438492 (Version 2)
Quarter: 2025Q3

REPORT INFORMATION
  Report Type: Report from Study
  Country: CA (occurrence: CA)
  Receive Date: 20250616
  Receipt Date: 20250709
  Transmission Date: 20251021
  Serious: Yes (Other)
  Sender: TAKEDA
  Company Number: CA-TAKEDA-2021TUS020154

PATIENT
  Sex: Male

DRUGS (21)
  1. VEDOLIZUMAB [Suspect]
     Active Substance: VEDOLIZUMAB
     Indication: Colitis ulcerative
  2. VEDOLIZUMAB [Suspect]
     Active Substance: VEDOLIZUMAB
     Dosage: 300 MILLIGRAM, Q4WEEKS
     Dates: start: 20220418
  3. VEDOLIZUMAB [Suspect]
     Active Substance: VEDOLIZUMAB
     Dosage: 300 MILLIGRAM, Q4WEEKS
  4. VEDOLIZUMAB [Suspect]
     Active Substance: VEDOLIZUMAB
     Dosage: 300 MILLIGRAM, Q4WEEKS
  5. VEDOLIZUMAB [Suspect]
     Active Substance: VEDOLIZUMAB
     Dosage: 300 MILLIGRAM, Q4WEEKS
  6. VEDOLIZUMAB [Suspect]
     Active Substance: VEDOLIZUMAB
     Dosage: 300 MILLIGRAM, Q4WEEKS
  7. VEDOLIZUMAB [Suspect]
     Active Substance: VEDOLIZUMAB
     Dosage: 300 MILLIGRAM, Q4WEEKS
  8. VEDOLIZUMAB [Suspect]
     Active Substance: VEDOLIZUMAB
     Dosage: 300 MILLIGRAM, Q4WEEKS
  9. VEDOLIZUMAB [Suspect]
     Active Substance: VEDOLIZUMAB
     Dosage: 300 MILLIGRAM, Q4WEEKS
  10. VEDOLIZUMAB [Suspect]
     Active Substance: VEDOLIZUMAB
     Dosage: 300 MILLIGRAM, Q4WEEKS
  11. VEDOLIZUMAB [Suspect]
     Active Substance: VEDOLIZUMAB
     Dosage: 300 MILLIGRAM, Q4WEEKS
  12. VEDOLIZUMAB [Suspect]
     Active Substance: VEDOLIZUMAB
     Dosage: 300 MILLIGRAM, Q4WEEKS
  13. VEDOLIZUMAB [Suspect]
     Active Substance: VEDOLIZUMAB
     Dosage: 300 MILLIGRAM, Q4WEEKS
  14. MESALAMINE [Concomitant]
     Active Substance: MESALAMINE
     Dosage: UNK UNK, BID
     Dates: end: 20240718
  15. VANCOMYCIN [Concomitant]
     Active Substance: VANCOMYCIN
     Dates: start: 20240319, end: 20240401
  16. AMOXICILLIN [Concomitant]
     Active Substance: AMOXICILLIN
     Dosage: UNK UNK, TID
     Dates: start: 20140104, end: 20140114
  17. OFEV [Concomitant]
     Active Substance: NINTEDANIB
     Dosage: 200 MILLIGRAM, BID
     Dates: start: 20250608
  18. ATORVASTATIN [Concomitant]
     Active Substance: ATORVASTATIN
  19. DICLOFENAC [Concomitant]
     Active Substance: DICLOFENAC
  20. MISOPROSTOL [Concomitant]
     Active Substance: MISOPROSTOL
     Dosage: 200 MICROGRAM, BID
  21. MISOPROSTOL [Concomitant]
     Active Substance: MISOPROSTOL

REACTIONS (3)
  - Pulmonary fibrosis [Not Recovered/Not Resolved]
  - Heart rate decreased [Unknown]
  - Blood pressure increased [Not Recovered/Not Resolved]
